FAERS Safety Report 4808057-0 (Version None)
Quarter: 2005Q4

REPORT INFORMATION
  Report Type: 
  Country: None (occurrence: None)
  Receive Date: 20051024
  Receipt Date: 20030407
  Transmission Date: 20060501
  Serious: Yes (Hospitalization, Other)
  Sender: FDA-Public Use
  Company Number: US-MERCK-0304USA00867

PATIENT
  Age: 65 Year
  Sex: Male
  Weight: 99 kg

DRUGS (4)
  1. VIOXX [Suspect]
     Indication: ARTHRALGIA
     Route: 048
     Dates: start: 20010308, end: 20020622
  2. DARVOCET-N 100 [Concomitant]
     Route: 065
     Dates: start: 20010131
  3. VICODIN [Concomitant]
     Indication: ARTHRALGIA
     Route: 065
     Dates: start: 20001113, end: 20010301
  4. VICODIN [Concomitant]
     Indication: BACK PAIN
     Route: 065
     Dates: start: 20001113, end: 20010301

REACTIONS (18)
  - ADVERSE EVENT [None]
  - ANEURYSM [None]
  - ATRIAL FIBRILLATION [None]
  - BASAL CELL CARCINOMA [None]
  - BLOOD CHOLESTEROL INCREASED [None]
  - BLOOD TRIGLYCERIDES INCREASED [None]
  - CARDIAC ANEURYSM [None]
  - CARDIAC FAILURE CONGESTIVE [None]
  - COLONIC PSEUDO-OBSTRUCTION [None]
  - CORONARY ARTERY DISEASE [None]
  - EAR PAIN [None]
  - HYPOTENSION [None]
  - ISCHAEMIC CARDIOMYOPATHY [None]
  - MYOCARDIAL INFARCTION [None]
  - OEDEMA PERIPHERAL [None]
  - PHARYNGITIS [None]
  - SEBORRHOEIC KERATOSIS [None]
  - VENTRICULAR TACHYCARDIA [None]
